FAERS Safety Report 5361341-7 (Version None)
Quarter: 2007Q2

REPORT INFORMATION
  Report Type: 
  Country: None (occurrence: None)
  Receive Date: 20070612
  Receipt Date: 20070530
  Transmission Date: 20071010
  Serious: Yes (Other)
  Sender: FDA-Public Use
  Company Number: S07-CAN-02497-01

PATIENT
  Age: 56 Year
  Sex: Female

DRUGS (15)
  1. CELEXA [Suspect]
     Dosage: 40 MG QD PO
     Route: 048
  2. DEXTROMETHORPHAN [Suspect]
     Dosage: 22 MG Q3HR PO
     Route: 048
  3. ACETAMINOPHEN [Concomitant]
  4. ARTIFICIAL SALIVA (SALIVA SUBSTITUTE) [Concomitant]
  5. BISACODYL [Concomitant]
  6. DIMENHYDRINATE [Concomitant]
  7. FENTANYL [Concomitant]
  8. SODIUM PHOSPHATES [Concomitant]
  9. FUROSEMIDE [Concomitant]
  10. GLYCOPYRROLATE [Concomitant]
  11. HYDROMORPHONE HCL [Concomitant]
  12. IPRATROPIUM BROMIDE [Concomitant]
  13. LORAZEPAM [Concomitant]
  14. SALBUTAMOL [Concomitant]
  15. SENOKOT [Concomitant]

REACTIONS (4)
  - AGITATION [None]
  - DEPRESSION [None]
  - DRUG INTERACTION [None]
  - HALLUCINATION [None]
